FAERS Safety Report 7819796-1 (Version None)
Quarter: 2011Q4

REPORT INFORMATION
  Report Type: 
  Country: None (occurrence: None)
  Receive Date: 20111018
  Receipt Date: 20110609
  Transmission Date: 20120403
  Serious: No
  Sender: FDA-Public Use
  Company Number: US-ASTRAZENECA-2011SE35735

PATIENT
  Age: 78 Year
  Sex: Female

DRUGS (3)
  1. SYMBICORT [Suspect]
     Route: 055
  2. ADVAIR DISKUS 100/50 [Concomitant]
  3. NEXIUM [Concomitant]

REACTIONS (2)
  - INCORRECT DOSE ADMINISTERED [None]
  - DYSPNOEA [None]
